FAERS Safety Report 6776222-1 (Version None)
Quarter: 2010Q2

REPORT INFORMATION
  Report Type: 
  Country: None (occurrence: None)
  Receive Date: 20100615
  Receipt Date: 20100603
  Transmission Date: 20101027
  Serious: Yes (Other)
  Sender: FDA-Public Use
  Company Number: 2010AP000935

PATIENT
  Age: 55 Year
  Sex: Female

DRUGS (4)
  1. BUPROPION HYDROCHLORIDE [Suspect]
     Dosage: 75 MG;QD;PO
     Route: 048
     Dates: start: 20100425, end: 20100425
  2. BUPROPION HYDROCHLORIDE [Concomitant]
  3. VITAMINS [Concomitant]
  4. CALCIUM CARBONATE [Concomitant]

REACTIONS (5)
  - BLOOD PRESSURE INCREASED [None]
  - CHEST PAIN [None]
  - DIZZINESS [None]
  - HEART RATE INCREASED [None]
  - NAUSEA [None]
